FAERS Safety Report 10207723 (Version 1)
Quarter: 2014Q2

REPORT INFORMATION
  Report Type: Spontaneous
  Country: US (occurrence: US)
  Receive Date: 20140530
  Receipt Date: 20140530
  Transmission Date: 20141212
  Serious: No
  Sender: FDA-Public Use
  Company Number: US-GLAXOSMITHKLINE-A1056399A

PATIENT
  Sex: Female

DRUGS (3)
  1. VENTOLIN [Suspect]
     Indication: ASTHMA
     Dosage: 1PUFF EIGHT TIMES PER DAY
     Route: 055
     Dates: start: 2013, end: 20140107
  2. SYNTHROID [Concomitant]
  3. LISINOPRIL [Concomitant]

REACTIONS (2)
  - Ventricular extrasystoles [Recovered/Resolved]
  - Overdose [Unknown]
